FAERS Safety Report 16128624 (Version 1)
Quarter: 2019Q1

REPORT INFORMATION
  Report Type: Report from Study
  Country: None (occurrence: US)
  Receive Date: 20190328
  Receipt Date: 20190328
  Transmission Date: 20190418
  Serious: Yes (Other)
  Sender: FDA-Public Use
  Company Number: US-ABBVIE-19K-163-2611828-00

PATIENT
  Age: 72 Year
  Sex: Female
  Weight: 72.64 kg

DRUGS (4)
  1. HUMIRA [Suspect]
     Active Substance: ADALIMUMAB
     Route: 058
     Dates: start: 20190118
  2. METOPROLOL. [Concomitant]
     Active Substance: METOPROLOL
     Indication: HYPERTENSION
  3. HUMIRA [Suspect]
     Active Substance: ADALIMUMAB
     Indication: COLITIS ULCERATIVE
     Route: 058
     Dates: start: 20160701, end: 20180817
  4. HUMIRA [Suspect]
     Active Substance: ADALIMUMAB
     Route: 058
     Dates: start: 20181026, end: 20181221

REACTIONS (13)
  - Osteoarthritis [Not Recovered/Not Resolved]
  - Eye discharge [Not Recovered/Not Resolved]
  - Peripheral swelling [Unknown]
  - Upper respiratory tract infection [Recovered/Resolved]
  - Skin exfoliation [Not Recovered/Not Resolved]
  - Arthropathy [Recovered/Resolved]
  - Rash [Unknown]
  - Pruritus generalised [Recovering/Resolving]
  - Procedural pain [Recovered/Resolved]
  - Osteoarthritis [Recovered/Resolved]
  - Influenza [Recovered/Resolved]
  - Dry skin [Not Recovered/Not Resolved]
  - Dyspnoea [Recovered/Resolved]

NARRATIVE: CASE EVENT DATE: 2018
